FAERS Safety Report 9844346 (Version 1)
Quarter: 2014Q1

REPORT INFORMATION
  Report Type: Spontaneous
  Country: US (occurrence: None)
  Receive Date: 20140123
  Receipt Date: 20140123
  Transmission Date: 20141002
  Serious: Yes (Other)
  Sender: FDA-Public Use
  Company Number: None

PATIENT
  Age: 37 Year
  Sex: Male
  Weight: 90.72 kg

DRUGS (1)
  1. DEBROX [Suspect]
     Indication: CERUMEN REMOVAL
     Dosage: REMOVAL OF EARWAX
     Dates: start: 20140104, end: 20140104

REACTIONS (1)
  - Tinnitus [None]
